FAERS Safety Report 25216756 (Version 1)
Quarter: 2025Q2

REPORT INFORMATION
  Report Type: Other
  Country: CA (occurrence: CA)
  Receive Date: 20250419
  Receipt Date: 20250419
  Transmission Date: 20250717
  Serious: Yes (Hospitalization, Disabling, Other)
  Sender: APOTEX
  Company Number: CA-APOTEX-2025AP004750

PATIENT
  Age: 74 Year
  Sex: Female

DRUGS (1)
  1. LITHIUM CARBONATE [Suspect]
     Active Substance: LITHIUM CARBONATE
     Indication: Bipolar disorder
     Dosage: 300 MILLIGRAM, BID
     Route: 048

REACTIONS (16)
  - Blood thyroid stimulating hormone decreased [Recovered/Resolved with Sequelae]
  - Cognitive disorder [Recovered/Resolved with Sequelae]
  - Delirium [Recovered/Resolved with Sequelae]
  - Disorientation [Recovered/Resolved with Sequelae]
  - Disturbance in attention [Recovered/Resolved with Sequelae]
  - Dysphagia [Recovered/Resolved with Sequelae]
  - Hallucination [Recovered/Resolved with Sequelae]
  - Malaise [Recovered/Resolved with Sequelae]
  - Tachycardia [Recovered/Resolved with Sequelae]
  - Thyroxine free [Recovered/Resolved with Sequelae]
  - Tri-iodothyronine free [Recovered/Resolved with Sequelae]
  - Parkinsonism [Recovered/Resolved with Sequelae]
  - Confusional state [Recovered/Resolved with Sequelae]
  - Fatigue [Recovered/Resolved with Sequelae]
  - Hyperthyroidism [Recovered/Resolved with Sequelae]
  - Tremor [Recovered/Resolved with Sequelae]
